FAERS Safety Report 24543841 (Version 1)
Quarter: 2024Q4

REPORT INFORMATION
  Report Type: Other
  Country: US (occurrence: US)
  Receive Date: 20241024
  Receipt Date: 20241024
  Transmission Date: 20250115
  Serious: Yes (Death, Hospitalization)
  Sender: DEXCEL LTD.
  Company Number: US-DEXPHARM-2024-4208

PATIENT
  Sex: Male

DRUGS (2)
  1. METHOTREXATE [Interacting]
     Active Substance: METHOTREXATE
     Indication: Product used for unknown indication
     Dosage: SIX TIMES A WEEK FOR AT LEAST FEW MONTHS
  2. LEVETIRACETAM [Interacting]
     Active Substance: LEVETIRACETAM
     Indication: Seizure

REACTIONS (2)
  - Toxicity to various agents [Fatal]
  - Drug interaction [Fatal]
